FAERS Safety Report 10224768 (Version 1)
Quarter: 2014Q2

REPORT INFORMATION
  Report Type: Report from Study
  Country: US (occurrence: US)
  Receive Date: 20140609
  Receipt Date: 20140609
  Transmission Date: 20141212
  Serious: Yes (Hospitalization)
  Sender: FDA-Public Use
  Company Number: US-ACTELION-A-NJ2014-099838

PATIENT
  Age: 49 Year
  Sex: Female

DRUGS (4)
  1. MACITENTAN [Suspect]
     Indication: COR PULMONALE CHRONIC
     Dosage: 10 MG, QD
     Route: 048
     Dates: start: 20140128
  2. REVATIO [Concomitant]
  3. TYVASO [Concomitant]
  4. REMODULIN [Concomitant]

REACTIONS (3)
  - General physical health deterioration [Unknown]
  - Pain in jaw [Unknown]
  - Nausea [Unknown]
